FAERS Safety Report 7535448-X (Version None)
Quarter: 2011Q2

REPORT INFORMATION
  Report Type: 
  Country: None (occurrence: None)
  Receive Date: 20110609
  Receipt Date: 20080703
  Transmission Date: 20111010
  Serious: Yes (Hospitalization)
  Sender: FDA-Public Use
  Company Number: PHHY2008GB11672

PATIENT
  Sex: Male

DRUGS (6)
  1. SINEMET CR [Concomitant]
     Indication: PARKINSON'S DISEASE
     Dosage: 125 MG, QD
     Route: 048
  2. CLOZAPINE [Suspect]
     Indication: PSYCHOTIC DISORDER
  3. MADOPAR DISPERSIBLE [Concomitant]
     Indication: PARKINSON'S DISEASE
     Dosage: 125 MG, QD
     Route: 048
  4. CLOZAPINE [Suspect]
     Indication: PARKINSON'S DISEASE
     Dosage: 37.5 MG, UNK
     Route: 048
  5. CLOZAPINE [Suspect]
     Indication: HALLUCINATION
  6. PRAMIPEXOLE DIHYDROCHLORIDE [Concomitant]
     Indication: PARKINSON'S DISEASE
     Dosage: UNK

REACTIONS (2)
  - LOWER RESPIRATORY TRACT INFECTION [None]
  - PNEUMONIA ASPIRATION [None]
